FAERS Safety Report 9306933 (Version 2)
Quarter: 2013Q2

REPORT INFORMATION
  Report Type: Spontaneous
  Country: IT (occurrence: IT)
  Receive Date: 20130523
  Receipt Date: 20130603
  Transmission Date: 20140414
  Serious: Yes (Other)
  Sender: FDA-Public Use
  Company Number: PHHY2013IT051206

PATIENT
  Sex: Female

DRUGS (2)
  1. VOLTAREN [Suspect]
     Indication: BACK PAIN
     Dosage: 75 MG/3 ML, 1 DF IN TOTAL
     Route: 030
     Dates: start: 20130418, end: 20130418
  2. MUSCORIL [Suspect]
     Indication: BACK PAIN
     Dosage: 4 MG/2 ML, 1 DF IN TOTAL
     Route: 030
     Dates: start: 20130418, end: 20130418

REACTIONS (4)
  - Presyncope [Recovering/Resolving]
  - Tachycardia [Recovering/Resolving]
  - Dizziness [Recovering/Resolving]
  - Tremor [Recovering/Resolving]
